FAERS Safety Report 9937928 (Version 1)
Quarter: 2014Q1

REPORT INFORMATION
  Report Type: Spontaneous
  Country: US (occurrence: US)
  Receive Date: 20140303
  Receipt Date: 20140303
  Transmission Date: 20141002
  Serious: No
  Sender: FDA-Public Use
  Company Number: US-BIOGENIDEC-2014BI016967

PATIENT
  Sex: Female
  Weight: 61 kg

DRUGS (4)
  1. TECFIDERA [Suspect]
     Indication: PRODUCT USED FOR UNKNOWN INDICATION
     Route: 048
  2. LEVOTHYROXIN [Concomitant]
  3. VITAMIN D-3 [Concomitant]
  4. CALCIUM 500 [Concomitant]

REACTIONS (1)
  - Fatigue [Unknown]
